FAERS Safety Report 19411860 (Version 2)
Quarter: 2022Q3

REPORT INFORMATION
  Report Type: Spontaneous
  Country: FR (occurrence: FR)
  Receive Date: 20210614
  Receipt Date: 20220713
  Transmission Date: 20221026
  Serious: Yes (Other)
  Sender: FDA-Public Use
  Company Number: FR-GSKCCFEMEA-CASE-01231835_AE-45549

PATIENT

DRUGS (2)
  1. BLENREP [Suspect]
     Active Substance: BELANTAMAB MAFODOTIN-BLMF
     Indication: Plasma cell myeloma
     Dosage: UNK
     Dates: end: 202103
  2. AMYLASE [Suspect]
     Active Substance: AMYLASE
     Indication: Plasma cell myeloma
     Dosage: UNK

REACTIONS (3)
  - Cataract [Unknown]
  - Ocular toxicity [Unknown]
  - Product administration interrupted [Unknown]

NARRATIVE: CASE EVENT DATE: 20210301
